FAERS Safety Report 18827357 (Version 1)
Quarter: 2021Q1

REPORT INFORMATION
  Report Type: Spontaneous
  Country: US (occurrence: US)
  Receive Date: 20210201
  Receipt Date: 20210201
  Transmission Date: 20210419
  Serious: No
  Sender: FDA-Public Use
  Company Number: US-ABBVIE-20K-163-3307328-00

PATIENT
  Age: 45 Year
  Sex: Female
  Weight: 90.8 kg

DRUGS (7)
  1. TRILEPTAL [Concomitant]
     Active Substance: OXCARBAZEPINE
     Indication: BIPOLAR DISORDER
  2. LEVOTHYROXINE. [Concomitant]
     Active Substance: LEVOTHYROXINE
     Indication: THYROID DISORDER
  3. ELAVIL [Concomitant]
     Active Substance: AMITRIPTYLINE HYDROCHLORIDE
     Indication: DEPRESSION
  4. BENAZEPRIL [Concomitant]
     Active Substance: BENAZEPRIL HYDROCHLORIDE
     Indication: HYPERTENSION
  5. HUMIRA [Suspect]
     Active Substance: ADALIMUMAB
     Indication: PSORIASIS
     Route: 058
     Dates: start: 201911, end: 20200318
  6. ESTRADIOL. [Concomitant]
     Active Substance: ESTRADIOL
     Indication: HORMONE THERAPY
  7. CBD OIL [Concomitant]
     Active Substance: CANNABIDIOL\HERBALS
     Indication: INSOMNIA

REACTIONS (4)
  - Injection site pain [Unknown]
  - Incorrect dose administered [Unknown]
  - Wrong technique in product usage process [Unknown]
  - Injection site pruritus [Unknown]

NARRATIVE: CASE EVENT DATE: 20200203
